FAERS Safety Report 20120139 (Version 1)
Quarter: 2021Q4

REPORT INFORMATION
  Report Type: Spontaneous
  Country: ES (occurrence: ES)
  Receive Date: 20211126
  Receipt Date: 20211126
  Transmission Date: 20220303
  Serious: Yes (Other)
  Sender: FDA-Public Use
  Company Number: ES-LUPIN PHARMACEUTICALS INC.-2021-23098

PATIENT
  Age: 5 Year
  Sex: Male

DRUGS (4)
  1. METHYLPHENIDATE HYDROCHLORIDE [Suspect]
     Active Substance: METHYLPHENIDATE HYDROCHLORIDE
     Indication: Attention deficit hyperactivity disorder
     Dosage: UNK
     Route: 065
  2. METHYLPHENIDATE HYDROCHLORIDE [Suspect]
     Active Substance: METHYLPHENIDATE HYDROCHLORIDE
     Indication: ADCY5-related dyskinesia
  3. LEVETIRACETAM [Suspect]
     Active Substance: LEVETIRACETAM
     Indication: ADCY5-related dyskinesia
     Dosage: 15 MILLIGRAM/KILOGRAM, QD
     Route: 065
  4. LEVETIRACETAM [Suspect]
     Active Substance: LEVETIRACETAM
     Indication: Attention deficit hyperactivity disorder

REACTIONS (4)
  - Condition aggravated [Recovering/Resolving]
  - Attention deficit hyperactivity disorder [Recovering/Resolving]
  - ADCY5-related dyskinesia [Recovering/Resolving]
  - Drug ineffective [Unknown]
